FAERS Safety Report 4679417-6 (Version None)
Quarter: 2005Q2

REPORT INFORMATION
  Report Type: 
  Country: None (occurrence: None)
  Receive Date: 20050602
  Receipt Date: 20050428
  Transmission Date: 20051028
  Serious: Yes (Hospitalization)
  Sender: FDA-Public Use
  Company Number: PHBS2005JP06039

PATIENT
  Age: 71 Year
  Sex: Male

DRUGS (6)
  1. SOLON [Concomitant]
     Dosage: 2 DF, UNK
     Route: 048
  2. ITOROL [Concomitant]
     Dosage: 40 MG, UNK
     Route: 048
  3. NORVASC [Concomitant]
     Dosage: 5 MG, UNK
     Route: 048
  4. LASIX [Suspect]
     Dosage: 10 MG, QD
     Route: 048
  5. BAYASPIRIN [Suspect]
     Dosage: 100 MG, QD
     Route: 048
  6. DIOVAN [Suspect]
     Dosage: 80 MG, QD
     Route: 048
     Dates: start: 20050301, end: 20050502

REACTIONS (5)
  - ERYTHEMA [None]
  - ERYTHEMA MULTIFORME [None]
  - PURPURA [None]
  - RASH [None]
  - SKIN HYPERPIGMENTATION [None]
